FAERS Safety Report 18079849 (Version 2)
Quarter: 2020Q3

REPORT INFORMATION
  Report Type: Spontaneous
  Country: US (occurrence: US)
  Receive Date: 20200728
  Receipt Date: 20200805
  Transmission Date: 20201103
  Serious: Yes (Other)
  Sender: FDA-Public Use
  Company Number: US-ASTRAZENECA-2020SE93063

PATIENT
  Age: 905 Month
  Sex: Female
  Weight: 61.2 kg

DRUGS (4)
  1. FARXIGA [Suspect]
     Active Substance: DAPAGLIFLOZIN PROPANEDIOL
     Dosage: 100.0MG UNKNOWN
     Route: 048
     Dates: start: 201410, end: 20200615
  2. TAGRISSO [Suspect]
     Active Substance: OSIMERTINIB
     Indication: LUNG CANCER METASTATIC
     Route: 048
     Dates: start: 20200616
  3. IMODIUM [Concomitant]
     Active Substance: LOPERAMIDE HYDROCHLORIDE
  4. TYLENOL [Concomitant]
     Active Substance: ACETAMINOPHEN

REACTIONS (15)
  - Dry skin [Recovered/Resolved]
  - Cough [Unknown]
  - White blood cell count decreased [Unknown]
  - Lung neoplasm malignant [Unknown]
  - Chest discomfort [Recovered/Resolved]
  - Product dose omission issue [Recovered/Resolved]
  - Hypotension [Recovering/Resolving]
  - Intentional product misuse [Recovered/Resolved]
  - Pyrexia [Recovering/Resolving]
  - Nausea [Unknown]
  - Body temperature increased [Recovered/Resolved]
  - Dyspnoea [Unknown]
  - Brain neoplasm [Unknown]
  - Neoplasm progression [Unknown]
  - Diarrhoea [Unknown]

NARRATIVE: CASE EVENT DATE: 202005
